FAERS Safety Report 9030653 (Version 2)
Quarter: 2013Q4

REPORT INFORMATION
  Report Type: Spontaneous
  Country: GB (occurrence: GB)
  Receive Date: 20130123
  Receipt Date: 20131004
  Transmission Date: 20140711
  Serious: Yes (Hospitalization, Other)
  Sender: FDA-Public Use
  Company Number: GB-ASTRAZENECA-2013SE03898

PATIENT
  Age: 67 Year
  Sex: Female
  Weight: 64.9 kg

DRUGS (4)
  1. LISINOPRIL TEVA [Suspect]
     Indication: HYPERTENSION
     Route: 048
     Dates: start: 2009, end: 2012
  2. PREDNISOLONE [Interacting]
     Indication: TEMPORAL ARTERITIS
     Route: 065
  3. PREDNISOLONE [Interacting]
     Indication: POLYMYALGIA RHEUMATICA
     Route: 065
  4. BISOPROLOL FUMARATE [Concomitant]

REACTIONS (12)
  - Drug interaction [Unknown]
  - Kidney infection [Recovering/Resolving]
  - Pyuria [Recovering/Resolving]
  - Urinary tract infection [Recovering/Resolving]
  - Malaise [Unknown]
  - Renal failure chronic [Unknown]
  - Pollakiuria [Unknown]
  - Pyuria [Unknown]
  - Blood creatinine increased [Recovering/Resolving]
  - Blood potassium increased [Recovering/Resolving]
  - Chromaturia [Unknown]
  - Red blood cell sedimentation rate increased [Unknown]
